FAERS Safety Report 5632320-7 (Version None)
Quarter: 2008Q1

REPORT INFORMATION
  Report Type: 
  Country: None (occurrence: None)
  Receive Date: 20080220
  Receipt Date: 20080208
  Transmission Date: 20080703
  Serious: Yes (Disabling, Other)
  Sender: FDA-Public Use
  Company Number: US-PURDUE-USA_2007_0030843

PATIENT
  Sex: Male

DRUGS (1)
  1. OXYCONTIN [Suspect]
     Indication: BACK PAIN
     Dates: start: 19990901, end: 20020201

REACTIONS (10)
  - ANOREXIA [None]
  - ANXIETY [None]
  - DEPRESSED MOOD [None]
  - DRUG ABUSE [None]
  - DRUG DEPENDENCE [None]
  - DRUG DETOXIFICATION [None]
  - IMPRISONMENT [None]
  - INSOMNIA [None]
  - MENTAL DISORDER [None]
  - SUICIDAL IDEATION [None]
